FAERS Safety Report 9286864 (Version 1)
Quarter: 2013Q2

REPORT INFORMATION
  Report Type: Spontaneous
  Country: LB (occurrence: None)
  Receive Date: 20130508
  Receipt Date: 20130508
  Transmission Date: 20140414
  Serious: Yes (Other)
  Sender: FDA-Public Use
  Company Number: 2013AP004698

PATIENT
  Age: 30 Year
  Sex: Male

DRUGS (7)
  1. DEFERIPRONE [Suspect]
     Indication: THALASSAEMIA BETA
  2. DEFEROXAMINE [Concomitant]
  3. LEVOTHYROXINE [Concomitant]
  4. CALCIUM [Concomitant]
  5. TESTOSTERONE ENANTHATE [Concomitant]
  6. PROPIONATE [Concomitant]
  7. FOLIC ACID [Concomitant]

REACTIONS (1)
  - Grand mal convulsion [None]
